FAERS Safety Report 8825654 (Version 1)
Quarter: 2012Q4

REPORT INFORMATION
  Report Type: 
  Country: US (occurrence: US)
  Receive Date: 20121004
  Receipt Date: 20121004
  Transmission Date: 20130627
  Serious: No
  Sender: FDA-Public Use
  Company Number: US-BAYER-2012-103877

PATIENT
  Age: 46 Year
  Sex: Female

DRUGS (11)
  1. BETASERON [Suspect]
     Dosage: 0.25 mg (1 ML) QOD
     Route: 058
  2. DEPAKOTE [Concomitant]
     Dosage: 125 mg, UNK
     Route: 048
  3. FUROSEMIDE [Concomitant]
     Dosage: 20 mg, UNK
     Route: 048
  4. PIROXICAM [Concomitant]
     Dosage: 10 mg, UNK
     Route: 048
  5. AMANTADINE [Concomitant]
     Dosage: 100 mg, UNK
     Route: 048
  6. MULTIVITAMIN [Concomitant]
     Route: 048
  7. FISH OIL [Concomitant]
     Route: 048
  8. FOLIC ACID [Concomitant]
     Dosage: 1 mg, UNK
     Route: 048
  9. HYDROCODONE [Concomitant]
     Route: 048
  10. HOMATROPIN [HOMATROPINE] [Concomitant]
  11. BACLOFEN [Concomitant]
     Dosage: 10 mg, UNK
     Route: 048

REACTIONS (2)
  - Injection site haematoma [Unknown]
  - Injection site induration [Unknown]
